FAERS Safety Report 4961474-0 (Version None)
Quarter: 2006Q2

REPORT INFORMATION
  Report Type: 
  Country: None (occurrence: None)
  Receive Date: 20060403
  Receipt Date: 20051205
  Transmission Date: 20061013
  Serious: Yes (Death, Hospitalization)
  Sender: FDA-Public Use
  Company Number: US-MERCK-0512USA00635

PATIENT
  Age: 43 Year
  Sex: Female
  Weight: 52 kg

DRUGS (30)
  1. RANITIDINE [Concomitant]
     Route: 048
  2. NEXIUM [Concomitant]
     Indication: GASTROOESOPHAGEAL REFLUX DISEASE
     Route: 065
  3. XANAX [Concomitant]
     Indication: GENERALISED ANXIETY DISORDER
     Route: 065
     Dates: start: 19900101, end: 20040324
  4. CARISOPRODOL [Concomitant]
     Indication: RHEUMATOID ARTHRITIS
     Route: 065
     Dates: start: 19800101, end: 20040324
  5. HYDROCODONE BITARTRATE [Concomitant]
     Indication: RHEUMATOID ARTHRITIS
     Route: 065
     Dates: start: 19800101, end: 20040324
  6. HYDROCODONE BITARTRATE [Concomitant]
     Indication: PAIN
     Route: 065
     Dates: start: 19800101, end: 20040324
  7. NITROQUICK [Concomitant]
     Route: 065
  8. VIOXX [Suspect]
     Indication: RHEUMATOID ARTHRITIS
     Route: 048
     Dates: start: 19991228, end: 20040324
  9. PRILOSEC [Concomitant]
     Indication: GASTROOESOPHAGEAL REFLUX DISEASE
     Route: 065
  10. WARFARIN [Concomitant]
     Indication: DEEP VEIN THROMBOSIS
     Route: 065
     Dates: start: 19970101, end: 20040324
  11. WARFARIN [Concomitant]
     Indication: THROMBOSIS
     Route: 065
     Dates: start: 19970101, end: 20040324
  12. PREDNISONE [Concomitant]
     Indication: RHEUMATOID ARTHRITIS
     Route: 065
     Dates: start: 19800101, end: 20040324
  13. PREDNISONE [Concomitant]
     Indication: PAIN
     Route: 065
     Dates: start: 19800101, end: 20040324
  14. SKELAXIN [Concomitant]
     Indication: RHEUMATOID ARTHRITIS
     Route: 065
     Dates: start: 19800101, end: 20040324
  15. SKELAXIN [Concomitant]
     Indication: PAIN
     Route: 065
     Dates: start: 19800101, end: 20040324
  16. PAXIL [Concomitant]
     Indication: GENERALISED ANXIETY DISORDER
     Route: 065
     Dates: start: 20000101, end: 20020101
  17. SOMA [Concomitant]
     Indication: RHEUMATOID ARTHRITIS
     Route: 065
     Dates: start: 19800101, end: 20040324
  18. MYCELEX [Concomitant]
     Route: 065
  19. OXYCONTIN [Concomitant]
     Indication: RHEUMATOID ARTHRITIS
     Route: 065
     Dates: start: 19800101, end: 20040101
  20. OXYCONTIN [Concomitant]
     Indication: PAIN
     Route: 065
     Dates: start: 19800101, end: 20040101
  21. FOSAMAX [Concomitant]
     Indication: RHEUMATOID ARTHRITIS
     Route: 065
  22. TRIAMTERENE [Concomitant]
     Route: 065
  23. ALPRAZOLAM [Concomitant]
     Route: 065
     Dates: start: 19900101, end: 20040324
  24. OMNICEF [Concomitant]
     Route: 065
  25. TOPROL-XL [Concomitant]
     Indication: HYPERTENSION
     Route: 065
     Dates: start: 20040319, end: 20040324
  26. COUMADIN [Concomitant]
     Indication: DEEP VEIN THROMBOSIS
     Route: 065
     Dates: start: 19970101, end: 20040324
  27. COUMADIN [Concomitant]
     Indication: THROMBOSIS
     Route: 065
     Dates: start: 19970101, end: 20040324
  28. MAVIK [Concomitant]
     Indication: HYPERTENSION
     Route: 065
     Dates: start: 20040319, end: 20040324
  29. FUROSEMIDE [Concomitant]
     Route: 065
  30. LEVAQUIN [Concomitant]
     Route: 065

REACTIONS (4)
  - ANGINA UNSTABLE [None]
  - SUDDEN CARDIAC DEATH [None]
  - VASCULAR INSUFFICIENCY [None]
  - VENOUS INSUFFICIENCY [None]
